FAERS Safety Report 21956606 (Version 2)
Quarter: 2023Q1

REPORT INFORMATION
  Report Type: Spontaneous
  Country: US (occurrence: US)
  Receive Date: 20230206
  Receipt Date: 20230210
  Transmission Date: 20230418
  Serious: No
  Sender: FDA-Public Use
  Company Number: US-SANOFI-01475055

PATIENT
  Age: 89 Year
  Sex: Female

DRUGS (1)
  1. LANTUS SOLOSTAR [Suspect]
     Active Substance: INSULIN GLARGINE
     Indication: Type 2 diabetes mellitus
     Dosage: 24 U, QD
     Dates: start: 2021

REACTIONS (6)
  - Feeling of body temperature change [Unknown]
  - Erythema [Unknown]
  - Confusional state [Unknown]
  - Blood glucose increased [Unknown]
  - Device issue [Unknown]
  - Drug effect less than expected [Unknown]

NARRATIVE: CASE EVENT DATE: 20230202
